FAERS Safety Report 17421557 (Version 1)
Quarter: 2020Q1

REPORT INFORMATION
  Report Type: Spontaneous
  Country: GB (occurrence: GB)
  Receive Date: 20200214
  Receipt Date: 20200214
  Transmission Date: 20200409
  Serious: Yes (Death, Other)
  Sender: FDA-Public Use
  Company Number: GB-PFIZER INC-2020064030

PATIENT
  Age: 28 Year
  Sex: Male

DRUGS (9)
  1. CLONAZEPAM. [Interacting]
     Active Substance: CLONAZEPAM
     Indication: BEHAVIOUR DISORDER
     Dosage: 6 MG, 1X/DAY
     Route: 048
     Dates: start: 20171201, end: 20181209
  2. ZUCLOPENTHIXOL [Interacting]
     Active Substance: ZUCLOPENTHIXOL
     Dosage: 20 MG, 1X/DAY (NIGHT)
     Route: 048
  3. PREGABALIN. [Suspect]
     Active Substance: PREGABALIN
     Dosage: UNK
  4. METHADONE [Interacting]
     Active Substance: METHADONE HYDROCHLORIDE
     Dosage: 35 MG, 1X/DAY
     Route: 048
  5. METHADONE [Interacting]
     Active Substance: METHADONE HYDROCHLORIDE
     Dosage: 20 MG, 1X/DAY
     Route: 048
     Dates: start: 20171204
  6. METHADONE [Interacting]
     Active Substance: METHADONE HYDROCHLORIDE
     Dosage: 35 MG, DAILY
  7. GABAPENTIN. [Concomitant]
     Active Substance: GABAPENTIN
     Dosage: 900 MG, 1X/DAY (300MG IN THE MORNING AND 600MG AT NIGHT)
     Route: 048
  8. ZUCLOPENTHIXOL DECANOATE [Interacting]
     Active Substance: ZUCLOPENTHIXOL DECANOATE
     Dosage: 500 MG, WEEKLY
  9. PROCYCLIDINE [Concomitant]
     Active Substance: PROCYCLIDINE
     Dosage: 15 MG, 1X/DAY
     Route: 048

REACTIONS (2)
  - Respiratory depression [Fatal]
  - Drug interaction [Unknown]

NARRATIVE: CASE EVENT DATE: 20171206
